FAERS Safety Report 22299058 (Version 2)
Quarter: 2023Q2

REPORT INFORMATION
  Report Type: Spontaneous
  Country: TW (occurrence: TW)
  Receive Date: 20230509
  Receipt Date: 20230526
  Transmission Date: 20230722
  Serious: Yes (Other)
  Sender: FDA-Public Use
  Company Number: TW-BAYER-2023A063172

PATIENT
  Age: 60 Year

DRUGS (1)
  1. EYLEA [Suspect]
     Active Substance: AFLIBERCEPT
     Indication: Diabetic retinal oedema
     Dosage: RIGHT EYE; SOLUTION FOR INJECTION, 40 MG/ML
     Route: 031

REACTIONS (2)
  - Vitreous haemorrhage [Unknown]
  - Embolism venous [Unknown]
